FAERS Safety Report 9281054 (Version 1)
Quarter: 2013Q2

REPORT INFORMATION
  Report Type: Spontaneous
  Country: DE (occurrence: DE)
  Receive Date: 20130509
  Receipt Date: 20130509
  Transmission Date: 20140414
  Serious: Yes (Other)
  Sender: FDA-Public Use
  Company Number: DE-ASTRAZENECA-2013SE30176

PATIENT
  Sex: Male

DRUGS (2)
  1. NEXIUM MUPS [Suspect]
     Route: 048
  2. GENERIC PROTON PUMP INHIBITORS [Suspect]

REACTIONS (3)
  - Condition aggravated [Unknown]
  - Gastric haemorrhage [Unknown]
  - Intentional drug misuse [Unknown]
